FAERS Safety Report 21495507 (Version 1)
Quarter: 2022Q4

REPORT INFORMATION
  Report Type: Other
  Country: CA (occurrence: CA)
  Receive Date: 20221022
  Receipt Date: 20221022
  Transmission Date: 20230112
  Serious: Yes (Other)
  Sender: FDA-Public Use
  Company Number: CA-CELLTRION INC.-2022CA017175

PATIENT

DRUGS (14)
  1. RITUXIMAB [Suspect]
     Active Substance: RITUXIMAB
     Indication: Rheumatoid arthritis
     Route: 041
  2. CALCIUM [Concomitant]
     Active Substance: CALCIUM
  3. DAPSONE [Concomitant]
     Active Substance: DAPSONE
  4. DEXILANT [Concomitant]
     Active Substance: DEXLANSOPRAZOLE
  5. GLICLAZIDE [Concomitant]
     Active Substance: GLICLAZIDE
  6. HYDROMORPHONE [Concomitant]
     Active Substance: HYDROMORPHONE
     Dosage: CAPSULE, SUSTAINED-RELEASE
  7. IRON [Concomitant]
     Active Substance: IRON
  8. MAGNESIUM [Concomitant]
     Active Substance: MAGNESIUM
  9. PREDNISONE [Concomitant]
     Active Substance: PREDNISONE
  10. ROSUVASTATIN CALCIUM [Concomitant]
     Active Substance: ROSUVASTATIN CALCIUM
  11. TYLENOL 8 HR ARTHRITIS PAIN [Concomitant]
     Active Substance: ACETAMINOPHEN
  12. VITAMIN B COMPLEX [Concomitant]
     Active Substance: CYANOCOBALAMIN\DEXPANTHENOL\NIACINAMIDE\PYRIDOXINE HYDROCHLORIDE\RIBOFLAVIN 5^-PHOSPHATE SODIUM\THIA
  13. VITAMIN C [Concomitant]
     Active Substance: ASCORBIC ACID
  14. VITAMIN D3 [Concomitant]
     Active Substance: CHOLECALCIFEROL

REACTIONS (5)
  - Blood glucose decreased [Recovered/Resolved]
  - Nail bed disorder [Recovered/Resolved]
  - Thrombocytopenia [Recovered/Resolved]
  - Weight decreased [Recovered/Resolved]
  - Palpitations [Recovered/Resolved]
